FAERS Safety Report 5490362-9 (Version None)
Quarter: 2007Q4

REPORT INFORMATION
  Report Type: 
  Country: None (occurrence: None)
  Receive Date: 20071015
  Receipt Date: 20070625
  Transmission Date: 20080405
  Serious: Yes (Hospitalization)
  Sender: FDA-Public Use
  Company Number: PHEH2007US08423

PATIENT
  Age: 18 Year
  Sex: Female
  Weight: 52 kg

DRUGS (4)
  1. MIACALCIN [Suspect]
     Indication: OSTEOPOROSIS
     Dosage: 200 IU, BID, INTRANASAL
     Route: 050
     Dates: start: 20040913, end: 20070609
  2. MIRALAX [Concomitant]
  3. MULTIVITAMINS (ASCORBIC ACID, ERGOCALCIFEROL, FOLIC ACID, NICOTINAMIDE [Concomitant]
  4. CALCIUM (CALCIUM) [Concomitant]

REACTIONS (11)
  - HILAR LYMPHADENOPATHY [None]
  - HYPERCALCAEMIA [None]
  - INAPPROPRIATE SCHEDULE OF DRUG ADMINISTRATION [None]
  - NASAL CONGESTION [None]
  - RASH [None]
  - RASH PRURITIC [None]
  - RHINITIS [None]
  - SCAB [None]
  - SNEEZING [None]
  - TENDERNESS [None]
  - URTICARIA [None]
